FAERS Safety Report 6403594-X (Version None)
Quarter: 2009Q4

REPORT INFORMATION
  Report Type: 
  Country: None (occurrence: None)
  Receive Date: 20091016
  Receipt Date: 20091007
  Transmission Date: 20100525
  Serious: Yes (Hospitalization)
  Sender: FDA-Public Use
  Company Number: US-JNJFOC-20091002506

PATIENT
  Sex: Female
  Weight: 65.77 kg

DRUGS (12)
  1. REMICADE [Suspect]
     Indication: RHEUMATOID ARTHRITIS
     Route: 042
     Dates: start: 20040120, end: 20090401
  2. PREDNISONE TAB [Suspect]
     Indication: DRUG USE FOR UNKNOWN INDICATION
  3. DARVOCET [Concomitant]
     Indication: PAIN
  4. CLONAZEPAM [Concomitant]
     Indication: MUSCLE SPASMS
  5. LIPITOR [Concomitant]
     Indication: BLOOD CHOLESTEROL
  6. MULTI-VITAMINS [Concomitant]
     Indication: MEDICAL DIET
  7. VITAMIN D [Concomitant]
     Indication: MEDICAL DIET
  8. CALCIUM [Concomitant]
     Indication: MEDICAL DIET
  9. SOLU-MEDROL [Concomitant]
     Indication: PREMEDICATION
  10. BENADRYL [Concomitant]
     Indication: SLEEP DISORDER THERAPY
  11. BENADRYL [Concomitant]
     Indication: PREMEDICATION
  12. LYRICA [Concomitant]
     Indication: FIBROMYALGIA

REACTIONS (8)
  - ABDOMINAL PAIN UPPER [None]
  - CHEST PAIN [None]
  - FIBROMYALGIA [None]
  - INFUSION RELATED REACTION [None]
  - NAUSEA [None]
  - TOOTH DISORDER [None]
  - URTICARIA [None]
  - VOMITING [None]
